FAERS Safety Report 20940158 (Version 1)
Quarter: 2022Q2

REPORT INFORMATION
  Report Type: Spontaneous
  Country: US (occurrence: None)
  Receive Date: 20220609
  Receipt Date: 20220609
  Transmission Date: 20220720
  Serious: Yes (Other)
  Sender: FDA-Public Use
  Company Number: None

PATIENT
  Age: 72 Year
  Sex: Male
  Weight: 81.6 kg

DRUGS (1)
  1. DOCETAXEL [Suspect]
     Active Substance: DOCETAXEL
     Indication: Prostate cancer metastatic
     Dosage: OTHER FREQUENCY : CHEMOTHERAPY CYCLE;?
     Route: 042
     Dates: start: 20220418, end: 20220418

REACTIONS (6)
  - Dyspnoea [None]
  - Erythema [None]
  - Blood pressure increased [None]
  - Wheezing [None]
  - Back pain [None]
  - Infusion related reaction [None]

NARRATIVE: CASE EVENT DATE: 20220418
